FAERS Safety Report 8447072-5 (Version None)
Quarter: 2012Q2

REPORT INFORMATION
  Report Type: 
  Country: None (occurrence: None)
  Receive Date: 20120619
  Receipt Date: 20120618
  Transmission Date: 20120825
  Serious: Yes (Death, Other)
  Sender: FDA-Public Use
  Company Number: PHHY2012GB044934

PATIENT
  Age: 40 Year
  Sex: Male
  Weight: 104 kg

DRUGS (3)
  1. METHADONE HCL [Suspect]
     Indication: PAIN
     Dosage: 45 MG, UNK
     Route: 048
     Dates: start: 20111025
  2. CLARITHROMYCIN [Interacting]
     Indication: INFECTION
     Dosage: 500 MG, UNK
     Route: 048
     Dates: start: 20111028
  3. ORAMORPH SR [Concomitant]
     Indication: PAIN
     Dosage: 100 MG, QD
     Route: 048
     Dates: end: 20111027

REACTIONS (2)
  - DEATH [None]
  - INHIBITORY DRUG INTERACTION [None]
